FAERS Safety Report 7458432-3 (Version None)
Quarter: 2011Q2

REPORT INFORMATION
  Report Type: 
  Country: None (occurrence: None)
  Receive Date: 20110504
  Receipt Date: 20110427
  Transmission Date: 20111010
  Serious: Yes (Other)
  Sender: FDA-Public Use
  Company Number: A0925625A

PATIENT
  Sex: Female

DRUGS (1)
  1. TYKERB [Suspect]
     Route: 065

REACTIONS (4)
  - ASTHENIA [None]
  - LETHARGY [None]
  - WRIST FRACTURE [None]
  - FALL [None]
